FAERS Safety Report 9343164 (Version 2)
Quarter: 2013Q3

REPORT INFORMATION
  Report Type: Spontaneous
  Country: US (occurrence: US)
  Receive Date: 20130611
  Receipt Date: 20130712
  Transmission Date: 20140515
  Serious: Yes (Other)
  Sender: FDA-Public Use
  Company Number: US-PFIZER INC-2013172697

PATIENT
  Age: 23 Year
  Sex: Male
  Weight: 72.56 kg

DRUGS (1)
  1. EPIPEN [Suspect]
     Dosage: 1:1000, 0.3 ML
     Dates: start: 20130605, end: 20130605

REACTIONS (4)
  - Accidental exposure to product [Not Recovered/Not Resolved]
  - Hypoaesthesia [Not Recovered/Not Resolved]
  - Paraesthesia [Not Recovered/Not Resolved]
  - Pallor [Not Recovered/Not Resolved]
